FAERS Safety Report 7769072-0 (Version None)
Quarter: 2011Q3

REPORT INFORMATION
  Report Type: 
  Country: None (occurrence: None)
  Receive Date: 20110922
  Receipt Date: 20110720
  Transmission Date: 20111222
  Serious: Yes (Other)
  Sender: FDA-Public Use
  Company Number: US-ASTRAZENECA-2008UW26983

PATIENT
  Age: 40 Year
  Sex: Female
  Weight: 58.1 kg

DRUGS (6)
  1. VENTOLIN HFA [Concomitant]
     Route: 048
     Dates: start: 20071031
  2. SEROQUEL [Suspect]
     Indication: BIPOLAR DISORDER
     Dosage: 25 MG TO 800 MG
     Route: 048
     Dates: start: 20000101, end: 20080301
  3. TOPAMAX [Concomitant]
     Route: 048
     Dates: start: 20071031
  4. RISPERDAL [Concomitant]
     Dates: start: 20080101
  5. ATIVAN [Concomitant]
     Route: 048
     Dates: start: 20071031
  6. AMBIEN [Concomitant]
     Route: 048
     Dates: start: 20071031

REACTIONS (7)
  - OSTEOARTHRITIS [None]
  - ASTHMA [None]
  - JOINT INJURY [None]
  - TYPE 2 DIABETES MELLITUS [None]
  - ROAD TRAFFIC ACCIDENT [None]
  - HALLUCINATION [None]
  - CONVULSION [None]
